FAERS Safety Report 15755222 (Version 3)
Quarter: 2025Q2

REPORT INFORMATION
  Report Type: Spontaneous
  Country: FR (occurrence: FR)
  Receive Date: 20181224
  Receipt Date: 20250429
  Transmission Date: 20250716
  Serious: Yes (Hospitalization, Other)
  Sender: AUROBINDO
  Company Number: FR-AUROBINDO-AUR-APL-2018-061147

PATIENT
  Age: 77 Year
  Sex: Female

DRUGS (5)
  1. AMITRIPTYLINE [Suspect]
     Active Substance: AMITRIPTYLINE
     Indication: Neuralgia
     Dosage: 10 MILLIGRAM, ONCE A DAY
     Route: 065
  2. DULOXETINE [Suspect]
     Active Substance: DULOXETINE
     Indication: Neuralgia
     Dosage: 30 MILLIGRAM, ONCE A DAY
     Route: 065
  3. ACETAMINOPHEN [Suspect]
     Active Substance: ACETAMINOPHEN
     Indication: Neuralgia
     Route: 065
  4. BACLOFEN [Suspect]
     Active Substance: BACLOFEN
     Indication: Neuralgia
     Dosage: 10 MILLIGRAM, ONCE A DAY
     Route: 065
  5. OPIUM [Suspect]
     Active Substance: OPIUM
     Indication: Neuralgia
     Route: 065

REACTIONS (1)
  - Drug ineffective [Unknown]
